FAERS Safety Report 5727817-5 (Version None)
Quarter: 2008Q2

REPORT INFORMATION
  Report Type: 
  Country: None (occurrence: None)
  Receive Date: 20080505
  Receipt Date: 20080423
  Transmission Date: 20081010
  Serious: Yes (Other)
  Sender: FDA-Public Use
  Company Number: US-ELI_LILLY_AND_COMPANY-US200804000245

PATIENT
  Sex: Female

DRUGS (3)
  1. PROZAC [Suspect]
     Indication: DEPRESSION
     Dosage: 20 MG, DAILY (1/D)
     Dates: start: 20070101
  2. PROZAC [Suspect]
     Dosage: 20 MG, DAILY (1/D)
  3. LAMICTAL [Concomitant]

REACTIONS (14)
  - ACTIVITIES OF DAILY LIVING IMPAIRED [None]
  - AGITATION [None]
  - ANGER [None]
  - CRYING [None]
  - DEPRESSED MOOD [None]
  - DEPRESSION [None]
  - DRUG INEFFECTIVE [None]
  - FEELING ABNORMAL [None]
  - FEELING JITTERY [None]
  - HOMICIDAL IDEATION [None]
  - PSYCHOTIC BEHAVIOUR [None]
  - SOCIAL PROBLEM [None]
  - SOMNOLENCE [None]
  - VISUAL DISTURBANCE [None]
